FAERS Safety Report 9954975 (Version 3)
Quarter: 2014Q2

REPORT INFORMATION
  Report Type: Other
  Country: JP (occurrence: JP)
  Receive Date: 20140304
  Receipt Date: 20140402
  Transmission Date: 20141212
  Serious: No
  Sender: FDA-Public Use
  Company Number: JP-SUCAMPO PHARMA AMERICAS, INC-SPI201400143

PATIENT
  Age: 64 Year
  Sex: Male

DRUGS (6)
  1. AMITIZA [Suspect]
     Indication: CONSTIPATION
     Dosage: 24 MCG, QD
     Route: 048
     Dates: start: 20130514, end: 20130525
  2. MEXITIL [Concomitant]
     Indication: ARRHYTHMIA
     Dosage: 100 MG, TID
     Route: 048
     Dates: start: 20050215
  3. GASTROM [Concomitant]
     Indication: GASTRIC ULCER
     Dosage: 1 G, BID
     Route: 048
     Dates: start: 20090210
  4. OMEPRAL [Concomitant]
     Indication: GASTRIC ULCER
     Dosage: 20 MG, QD
     Route: 048
     Dates: start: 20090505
  5. ZYLORIC [Concomitant]
     Indication: GOUT
     Dosage: 100 MG, QD
     Route: 048
     Dates: start: 20090210
  6. MAINTATE [Concomitant]
     Indication: HYPERTENSION
     Dosage: 2.5 MG, QD
     Route: 048
     Dates: start: 20130618

REACTIONS (2)
  - Chest discomfort [Recovered/Resolved]
  - Drug effect incomplete [Unknown]
